FAERS Safety Report 15954453 (Version 2)
Quarter: 2019Q1

REPORT INFORMATION
  Report Type: Spontaneous
  Country: IE (occurrence: IE)
  Receive Date: 20190212
  Receipt Date: 20190221
  Transmission Date: 20190417
  Serious: Yes (Hospitalization, Other)
  Sender: FDA-Public Use
  Company Number: IE-BAUSCH-BL-2019-003848

PATIENT
  Age: 72 Year
  Sex: Male

DRUGS (11)
  1. PREDNISOLONE. [Suspect]
     Active Substance: PREDNISOLONE
     Dosage: STEROID THERAPY WAS SLOWLY WEANED OFF
     Route: 065
  2. FEIBA [Concomitant]
     Active Substance: ANTI-INHIBITOR COAGULANT COMPLEX
     Dosage: REINTRODUCED
     Route: 065
  3. CYCLOPHOSPHAMIDE. [Suspect]
     Active Substance: CYCLOPHOSPHAMIDE
     Dosage: STEROID THERAPY WAS SLOWLY WEANED OFF
     Route: 065
  4. FEIBA [Concomitant]
     Active Substance: ANTI-INHIBITOR COAGULANT COMPLEX
     Indication: ACQUIRED HAEMOPHILIA
     Dosage: 80 UNITS/KG
     Route: 065
  5. PREDNISOLONE. [Suspect]
     Active Substance: PREDNISOLONE
     Indication: ACQUIRED HAEMOPHILIA WITH ANTI FVIII, XI, OR XIII
     Dosage: HIGH DOSE
     Route: 065
  6. RITUXIMAB. [Suspect]
     Active Substance: RITUXIMAB
     Indication: ACQUIRED HAEMOPHILIA WITH ANTI FVIII, XI, OR XIII
     Route: 065
  7. CYCLOPHOSPHAMIDE. [Suspect]
     Active Substance: CYCLOPHOSPHAMIDE
     Indication: ACQUIRED HAEMOPHILIA WITH ANTI FVIII, XI, OR XIII
     Route: 065
  8. LEUPRORELIN [Concomitant]
     Active Substance: LEUPROLIDE ACETATE
     Indication: PROSTATE CANCER
  9. BICALUTAMIDE. [Concomitant]
     Active Substance: BICALUTAMIDE
     Indication: PRODUCT USED FOR UNKNOWN INDICATION
     Route: 065
  10. BICALUTAMIDE. [Concomitant]
     Active Substance: BICALUTAMIDE
     Dosage: CONTINUED
     Route: 065
  11. RITUXIMAB. [Suspect]
     Active Substance: RITUXIMAB
     Dosage: STEROID THERAPY WAS SLOWLY WEANED OFF
     Route: 065

REACTIONS (2)
  - Neutropenia [Unknown]
  - Steroid diabetes [Unknown]
